FAERS Safety Report 22523488 (Version 3)
Quarter: 2023Q2

REPORT INFORMATION
  Report Type: Spontaneous
  Country: CA (occurrence: CA)
  Receive Date: 20230606
  Receipt Date: 20230628
  Transmission Date: 20230722
  Serious: Yes (Hospitalization)
  Sender: FDA-Public Use
  Company Number: CA-CELLTRION INC.-2023CA008777

PATIENT

DRUGS (7)
  1. INFLECTRA [Suspect]
     Active Substance: INFLIXIMAB-DYYB
     Indication: Crohn^s disease
     Dosage: 5 MG/KG W0, 2, 6 AND Q8 WEEKS ( 1 DF )
     Route: 042
     Dates: start: 20221108, end: 20230607
  2. INFLECTRA [Suspect]
     Active Substance: INFLIXIMAB-DYYB
     Dosage: 80 MG 14 WEEKS AND 5 DAYS (5MG/KG W0, 2, 6 AND Q8 WEEKS)
     Route: 042
     Dates: start: 20230526
  3. ADVIL [Concomitant]
     Active Substance: IBUPROFEN
     Dosage: 1 DF
  4. DICLOFENAC [Concomitant]
     Active Substance: DICLOFENAC
     Dosage: UNK
  5. ACETAMINOPHEN\CODEINE PHOSPHATE [Concomitant]
     Active Substance: ACETAMINOPHEN\CODEINE PHOSPHATE
     Dosage: UNK
  6. TYLENOL [Concomitant]
     Active Substance: ACETAMINOPHEN
     Dosage: 1 DF
  7. ASCORBIC ACID\ERGOCALCIFEROL\NIACINAMIDE\RETINOL\RIBOFLAVIN\THIAMINE [Concomitant]
     Active Substance: ASCORBIC ACID\ERGOCALCIFEROL\NIACINAMIDE\RETINOL\RIBOFLAVIN\THIAMINE
     Dosage: 1 DF

REACTIONS (14)
  - Dyspnoea [Recovering/Resolving]
  - Chest discomfort [Recovering/Resolving]
  - Drug specific antibody present [Unknown]
  - Influenza [Unknown]
  - Cough [Recovering/Resolving]
  - Pharyngeal swelling [Recovering/Resolving]
  - Headache [Unknown]
  - Vision blurred [Unknown]
  - Tremor [Unknown]
  - Amnesia [Recovering/Resolving]
  - Prosopagnosia [Recovering/Resolving]
  - Eating disorder [Recovering/Resolving]
  - Tremor [Recovering/Resolving]
  - Inappropriate schedule of product administration [Unknown]

NARRATIVE: CASE EVENT DATE: 20230101
